FAERS Safety Report 19673742 (Version 1)
Quarter: 2021Q3

REPORT INFORMATION
  Report Type: Spontaneous
  Country: US (occurrence: US)
  Receive Date: 20210809
  Receipt Date: 20210809
  Transmission Date: 20211014
  Serious: Yes (Other)
  Sender: FDA-Public Use
  Company Number: US-ACCORD-167487

PATIENT
  Age: 61 Year
  Sex: Female
  Weight: 74.84 kg

DRUGS (12)
  1. ZETIA [Concomitant]
     Active Substance: EZETIMIBE
     Dates: start: 2011
  2. FEMARA [Concomitant]
     Active Substance: LETROZOLE
     Dates: start: 2009
  3. BUPROPION/BUPROPION HYDROCHLORIDE [Concomitant]
     Active Substance: BUPROPION HYDROCHLORIDE
     Dates: start: 2009
  4. VALACICLOVIR [Concomitant]
     Active Substance: VALACYCLOVIR HYDROCHLORIDE
     Dates: start: 2009
  5. SIMVASTATIN. [Concomitant]
     Active Substance: SIMVASTATIN
     Dates: start: 2011
  6. GLYBURIDE. [Concomitant]
     Active Substance: GLYBURIDE
     Dates: start: 2011, end: 2016
  7. DOCETAXEL. [Suspect]
     Active Substance: DOCETAXEL
     Indication: BREAST CANCER
     Dosage: NUMBER OF CYCLES: 04
     Dates: start: 20120426, end: 20120628
  8. CYTOXAN [Suspect]
     Active Substance: CYCLOPHOSPHAMIDE
     Indication: BREAST CANCER
     Dosage: NUMBER OF CYCLES: 04,EVERY 3 WEEKS
     Dates: start: 20120426, end: 20120628
  9. MELOXICAM. [Concomitant]
     Active Substance: MELOXICAM
     Dates: start: 2011
  10. ENALAPRIL [Concomitant]
     Active Substance: ENALAPRIL
     Dates: start: 2011
  11. GLIPIZIDE. [Concomitant]
     Active Substance: GLIPIZIDE
     Dates: start: 2009
  12. METFORMIN [Concomitant]
     Active Substance: METFORMIN HYDROCHLORIDE
     Dates: start: 2009

REACTIONS (1)
  - Alopecia [Not Recovered/Not Resolved]

NARRATIVE: CASE EVENT DATE: 201204
